FAERS Safety Report 10592088 (Version 3)
Quarter: 2015Q1

REPORT INFORMATION
  Report Type: Report from Study
  Country: US (occurrence: US)
  Receive Date: 20141119
  Receipt Date: 20150111
  Transmission Date: 20150720
  Serious: No
  Sender: FDA-Public Use
  Company Number: US-AMGEN-USASL2014088687

PATIENT
  Age: 41 Year
  Sex: Female

DRUGS (2)
  1. COUMADIN [Concomitant]
     Active Substance: WARFARIN SODIUM
     Indication: BLOOD DISORDER
     Dosage: UNK
  2. ENBREL [Suspect]
     Active Substance: ETANERCEPT
     Indication: RHEUMATOID ARTHRITIS
     Dosage: 50 MG, ONCE WEEKLY
     Route: 065
     Dates: start: 20140411

REACTIONS (17)
  - Pain in extremity [Not Recovered/Not Resolved]
  - Tenosynovitis [Not Recovered/Not Resolved]
  - Carpal tunnel syndrome [Not Recovered/Not Resolved]
  - Cubital tunnel syndrome [Not Recovered/Not Resolved]
  - Vitamin D decreased [Not Recovered/Not Resolved]
  - Injection site pain [Not Recovered/Not Resolved]
  - Neuropathy peripheral [Not Recovered/Not Resolved]
  - Pain [Unknown]
  - Infection [Unknown]
  - Bronchitis [Unknown]
  - Dysphonia [Not Recovered/Not Resolved]
  - Migraine [Not Recovered/Not Resolved]
  - Arthralgia [Not Recovered/Not Resolved]
  - Injection site extravasation [Recovered/Resolved]
  - Fibromyalgia [Not Recovered/Not Resolved]
  - Tooth infection [Not Recovered/Not Resolved]
  - Hyperaesthesia [Not Recovered/Not Resolved]

NARRATIVE: CASE EVENT DATE: 2014
